FAERS Safety Report 14961457 (Version 2)
Quarter: 2018Q2

REPORT INFORMATION
  Report Type: Spontaneous
  Country: NL (occurrence: NL)
  Receive Date: 20180601
  Receipt Date: 20180601
  Transmission Date: 20180711
  Serious: Yes (Hospitalization, Other)
  Sender: FDA-Public Use
  Company Number: PHHY2016NL186822

PATIENT
  Age: 68 Year
  Sex: Female

DRUGS (12)
  1. DOXORUBICIN [Suspect]
     Active Substance: DOXORUBICIN
     Indication: NON-HODGKIN^S LYMPHOMA
     Dosage: LAST ADMINISTRATION DATE BEFORE AE OCCURENCE 29-SEP-2016
     Route: 042
     Dates: start: 20160608
  2. PREDNISON [Concomitant]
     Active Substance: PREDNISONE
     Indication: B-CELL LYMPHOMA
     Dosage: 15 MG, UNK
     Route: 048
  3. RITUXIMAB. [Concomitant]
     Active Substance: RITUXIMAB
     Indication: PRODUCT USED FOR UNKNOWN INDICATION
     Dosage: 650 MG, UNK
     Route: 065
  4. DIVISUN [Concomitant]
     Indication: VITAMIN D DECREASED
     Dosage: 800 IU, UNK
     Route: 048
  5. VINBLASTINE [Concomitant]
     Active Substance: VINBLASTINE
     Indication: PRODUCT USED FOR UNKNOWN INDICATION
     Dosage: 10 MILLIGRAM DAILY
     Route: 065
  6. VINCRISTINE [Suspect]
     Active Substance: VINCRISTINE
     Indication: NON-HODGKIN^S LYMPHOMA
     Dosage: LAST ADMINISTRATION DATE BEFORE AE OCCURENCE 29-SEP-2016
     Route: 042
     Dates: start: 20160608
  7. CYCLOPHOSPHAMIDE. [Suspect]
     Active Substance: CYCLOPHOSPHAMIDE
     Indication: NON-HODGKIN^S LYMPHOMA
     Dosage: LAST ADMINISTRATION DATE BEFORE AE OCCURENCE 29-SEP-2016
     Route: 042
     Dates: start: 20160608
  8. PREDNISOLONE. [Suspect]
     Active Substance: PREDNISOLONE
     Indication: NON-HODGKIN^S LYMPHOMA
     Dosage: LAST ADMINISTRATION DATE BEFORE AE OCCURENCE 03-OCT-2016
     Route: 048
  9. LONQUEX [Suspect]
     Active Substance: LIPEGFILGRASTIM
     Indication: PROPHYLAXIS
     Dosage: LAST ADMINISTRATION DATE BEFORE AE OCCURENCE 30-SEP-2016
     Route: 058
     Dates: start: 20160609
  10. METOPROLOL. [Concomitant]
     Active Substance: METOPROLOL
     Indication: HYPERTENSION
     Route: 048
  11. CEFUROXIME. [Concomitant]
     Active Substance: CEFUROXIME
     Indication: PROPHYLAXIS
     Dosage: 3 TIMES A DAY 1500 MG BEFORE AND AFTER CHOLECYSTECTOMY
     Route: 042
  12. FLAGYL [Concomitant]
     Active Substance: METRONIDAZOLE\METRONIDAZOLE HYDROCHLORIDE
     Indication: PROPHYLAXIS
     Dosage: 3 TIMES A DAY 500 MG BEFORE AND AFTER CHOLECYSTECTOMY
     Route: 042

REACTIONS (1)
  - Malaise [Recovered/Resolved]

NARRATIVE: CASE EVENT DATE: 20161008
